FAERS Safety Report 11840555 (Version 1)
Quarter: 2015Q4

REPORT INFORMATION
  Report Type: Spontaneous
  Country: US (occurrence: US)
  Receive Date: 20151216
  Receipt Date: 20151216
  Transmission Date: 20160305
  Serious: Yes (Other)
  Sender: FDA-Public Use
  Company Number: US-BEH-2015056734

PATIENT
  Sex: Female
  Weight: 65 kg

DRUGS (20)
  1. ZOLOFT [Concomitant]
     Active Substance: SERTRALINE HYDROCHLORIDE
  2. GLUCOSAMINE [Concomitant]
     Active Substance: GLUCOSAMINE
  3. CLARITIN [Concomitant]
     Active Substance: LORATADINE
  4. A- HYDROCORT [Concomitant]
  5. VITAMIN B COMPLEX [Concomitant]
     Active Substance: CYANOCOBALAMIN\DEXPANTHENOL\NIACINAMIDE\PYRIDOXINE HYDROCHLORIDE\RIBOFLAVIN 5^-PHOSPHATE SODIUM\THIAMINE HYDROCHLORIDE\VITAMIN B COMPLEX
  6. ALBUTEROL. [Concomitant]
     Active Substance: ALBUTEROL
  7. LORAZEPAM. [Concomitant]
     Active Substance: LORAZEPAM
  8. HIZENTRA [Suspect]
     Active Substance: HUMAN IMMUNOGLOBULIN G
     Indication: IMMUNODEFICIENCY COMMON VARIABLE
     Route: 058
     Dates: start: 20101021
  9. LYRICA [Concomitant]
     Active Substance: PREGABALIN
  10. OXYCODONE [Concomitant]
     Active Substance: OXYCODONE
  11. NASACORT [Concomitant]
     Active Substance: TRIAMCINOLONE ACETONIDE
  12. MULTIVITAMINS [Concomitant]
     Active Substance: VITAMINS
  13. PREVACID [Concomitant]
     Active Substance: LANSOPRAZOLE
  14. ELMIRON [Concomitant]
     Active Substance: PENTOSAN POLYSULFATE SODIUM
  15. SLOW MAG [Concomitant]
     Active Substance: MAGNESIUM CHLORIDE
  16. ACYCLOVIR. [Concomitant]
     Active Substance: ACYCLOVIR
  17. CEPHALEXIN. [Concomitant]
     Active Substance: CEPHALEXIN
  18. LORTAB [Concomitant]
     Active Substance: ACETAMINOPHEN\HYDROCODONE BITARTRATE
  19. FISH OIL [Concomitant]
     Active Substance: FISH OIL
  20. ESTRADIOL. [Concomitant]
     Active Substance: ESTRADIOL

REACTIONS (1)
  - Carpal tunnel decompression [Unknown]
